FAERS Safety Report 26161240 (Version 1)
Quarter: 2025Q4

REPORT INFORMATION
  Report Type: Spontaneous
  Country: US (occurrence: US)
  Receive Date: 20251216
  Receipt Date: 20251216
  Transmission Date: 20260118
  Serious: No
  Sender: ALVOGEN
  Company Number: US-ALVOGEN-2025096133

PATIENT
  Age: 56 Year
  Sex: Female

DRUGS (1)
  1. FENTANYL [Suspect]
     Active Substance: FENTANYL
     Indication: Pain
     Dosage: EXPIRATION DATE: UU-APR-2027?25 MCG/HR?MANUFACTURING DATE: 23-APR-2024
     Route: 062
     Dates: start: 20250108

REACTIONS (5)
  - Night sweats [Unknown]
  - Device adhesion issue [Unknown]
  - Device malfunction [Unknown]
  - Wrong technique in device usage process [Unknown]
  - Therapeutic product effect delayed [Unknown]

NARRATIVE: CASE EVENT DATE: 20250101
